FAERS Safety Report 11364023 (Version 3)
Quarter: 2018Q4

REPORT INFORMATION
  Report Type: Report from Study
  Country: DE (occurrence: DE)
  Receive Date: 20150811
  Receipt Date: 20181102
  Transmission Date: 20190204
  Serious: No
  Sender: FDA-Public Use
  Company Number: DE-JNJFOC-20140517234

PATIENT
  Age: 70 Year
  Sex: Male
  Weight: 89.2 kg

DRUGS (4)
  1. PREDNISONE. [Concomitant]
     Active Substance: PREDNISONE
     Route: 048
  2. PREDNISOLONE. [Concomitant]
     Active Substance: PREDNISOLONE
     Route: 048
     Dates: start: 20140215
  3. ABIRATERONE ACETATE. [Suspect]
     Active Substance: ABIRATERONE ACETATE
     Indication: PROSTATE CANCER METASTATIC
     Route: 048
     Dates: start: 20140214, end: 20150813
  4. LUPRON [Concomitant]
     Active Substance: LEUPROLIDE ACETATE
     Dosage: 93 M
     Route: 065
     Dates: start: 20091030

REACTIONS (9)
  - Back pain [Not Recovered/Not Resolved]
  - Anal haemorrhage [Recovered/Resolved]
  - Vertigo positional [Not Recovered/Not Resolved]
  - Haemorrhoids [Recovered/Resolved]
  - Dizziness postural [Not Recovered/Not Resolved]
  - Osteoarthritis [Not Recovered/Not Resolved]
  - Palpitations [Not Recovered/Not Resolved]
  - Proctitis [Unknown]
  - Cystitis [Recovered/Resolved]

NARRATIVE: CASE EVENT DATE: 20140217
